FAERS Safety Report 12516663 (Version 1)
Quarter: 2016Q2

REPORT INFORMATION
  Report Type: Spontaneous
  Country: BR (occurrence: BR)
  Receive Date: 20160630
  Receipt Date: 20160630
  Transmission Date: 20160815
  Serious: Yes (Other)
  Sender: FDA-Public Use
  Company Number: BR-BRISTOL-MYERS SQUIBB COMPANY-BMS-2016-051653

PATIENT
  Age: 48 Year
  Sex: Female

DRUGS (1)
  1. GLIFAGE [Suspect]
     Active Substance: METFORMIN HYDROCHLORIDE
     Indication: TYPE 2 DIABETES MELLITUS
     Dosage: 1 DF, BID
     Route: 048
     Dates: start: 1986, end: 20160611

REACTIONS (3)
  - Wrong technique in product usage process [Unknown]
  - Dementia Alzheimer^s type [Unknown]
  - Dysphagia [Unknown]

NARRATIVE: CASE EVENT DATE: 1986
